FAERS Safety Report 25612602 (Version 1)
Quarter: 2025Q3

REPORT INFORMATION
  Report Type: Other
  Country: AU (occurrence: AU)
  Receive Date: 20250728
  Receipt Date: 20250728
  Transmission Date: 20251020
  Serious: Yes (Other)
  Sender: NOVA LABORATORIES LIMITED
  Company Number: AU-Nova Laboratories Limited-2181354

PATIENT
  Age: 13 Year
  Sex: Male

DRUGS (10)
  1. PURIXAN [Suspect]
     Active Substance: MERCAPTOPURINE
     Indication: B precursor type acute leukaemia
  2. CYCLOPHOSPHAMIDE [Suspect]
     Active Substance: CYCLOPHOSPHAMIDE
  3. VINCRISTINE SULFATE [Suspect]
     Active Substance: VINCRISTINE SULFATE
  4. PEGASPARGASE [Suspect]
     Active Substance: PEGASPARGASE
  5. METHOTREXATE [Suspect]
     Active Substance: METHOTREXATE
  6. METHOTREXATE [Suspect]
     Active Substance: METHOTREXATE
  7. FLUDARABINE PHOSPHATE [Suspect]
     Active Substance: FLUDARABINE PHOSPHATE
  8. FLUDARABINE PHOSPHATE [Suspect]
     Active Substance: FLUDARABINE PHOSPHATE
  9. CYTARABINE [Suspect]
     Active Substance: CYTARABINE
  10. CYCLOPHOSPHAMIDE [Suspect]
     Active Substance: CYCLOPHOSPHAMIDE

REACTIONS (6)
  - Nephropathy toxic [Unknown]
  - Drug ineffective [Unknown]
  - Hepatotoxicity [Unknown]
  - Pneumonia viral [Unknown]
  - Febrile neutropenia [Unknown]
  - Cutaneous mucormycosis [Unknown]
